FAERS Safety Report 9550803 (Version 1)
Quarter: 2013Q3

REPORT INFORMATION
  Report Type: Spontaneous
  Country: US (occurrence: US)
  Receive Date: 20130924
  Receipt Date: 20130924
  Transmission Date: 20140515
  Serious: No
  Sender: FDA-Public Use
  Company Number: US-SANOFI-AVENTIS-2013SA053136

PATIENT
  Age: 45 Year
  Sex: Female
  Weight: 81.65 kg

DRUGS (7)
  1. AUBAGIO [Suspect]
     Indication: MULTIPLE SCLEROSIS
     Route: 048
     Dates: start: 20121215
  2. SYNTHROID [Concomitant]
     Indication: THYROID DISORDER
  3. TRAMADOL [Concomitant]
     Indication: PAIN
  4. LAXATIVES [Concomitant]
     Indication: CONSTIPATION
  5. XANAX [Concomitant]
     Indication: ANXIETY
     Dosage: DOSE - 0.25
  6. PROTONIX [Concomitant]
     Indication: GASTRIC DISORDER
  7. PROZAC [Concomitant]
     Indication: DEPRESSION

REACTIONS (5)
  - Multiple sclerosis relapse [Not Recovered/Not Resolved]
  - Muscle spasms [Not Recovered/Not Resolved]
  - Hypoaesthesia [Not Recovered/Not Resolved]
  - Burning sensation [Not Recovered/Not Resolved]
  - Alopecia [Not Recovered/Not Resolved]
